FAERS Safety Report 9306581 (Version 1)
Quarter: 2013Q1

REPORT INFORMATION
  Report Type: Spontaneous
  Country: US (occurrence: None)
  Receive Date: 20130206
  Receipt Date: 20130206
  Transmission Date: 20140127
  Serious: Yes (Hospitalization)
  Sender: FDA-Public Use
  Company Number: DSA_61321_2012

PATIENT
  Sex: Male

DRUGS (1)
  1. XENAZINE 12.5 MG (NOT SPECIFIED) [Suspect]
     Indication: CHOREA
     Route: 048
     Dates: start: 20120904

REACTIONS (2)
  - Hernia [None]
  - Urinary tract infection [None]
